FAERS Safety Report 5792213-1 (Version None)
Quarter: 2008Q2

REPORT INFORMATION
  Report Type: 
  Country: None (occurrence: None)
  Receive Date: 20080626
  Receipt Date: 20080602
  Transmission Date: 20081010
  Serious: No
  Sender: FDA-Public Use
  Company Number: US-BOEHRINGER INGELHEIM GMBH, GERMANY-2008-BP-08559BP

PATIENT
  Sex: Female

DRUGS (1)
  1. ZANTAC [Suspect]
     Dates: start: 20080601

REACTIONS (2)
  - CONSTIPATION [None]
  - SOMNOLENCE [None]
